FAERS Safety Report 19014173 (Version 1)
Quarter: 2021Q1

REPORT INFORMATION
  Report Type: Spontaneous
  Country: CN (occurrence: CN)
  Receive Date: 20210316
  Receipt Date: 20210316
  Transmission Date: 20210420
  Serious: Yes (Hospitalization, Other)
  Sender: FDA-Public Use
  Company Number: CN-PFIZER INC-2021240559

PATIENT
  Age: 14 Month
  Sex: Female
  Weight: 9 kg

DRUGS (7)
  1. LEVETIRACETAM. [Suspect]
     Active Substance: LEVETIRACETAM
     Indication: EPILEPSY
     Dosage: 2.000 ML, EVERY 12 HOURS
     Route: 048
     Dates: start: 20210130, end: 20210213
  2. SODIUM CHLORIDE. [Concomitant]
     Active Substance: SODIUM CHLORIDE
     Indication: VEHICLE SOLUTION USE
     Dosage: 30.000 ML, 3X/DAY
     Route: 041
     Dates: start: 20210205, end: 20210213
  3. ZYVOX [Suspect]
     Active Substance: LINEZOLID
     Indication: MENINGITIS
     Dosage: 96.00000 MG, EVERY 8 HOURS
     Route: 041
     Dates: start: 20210128, end: 20210220
  4. ROCEPHIN [Suspect]
     Active Substance: CEFTRIAXONE SODIUM
     Indication: MENINGITIS
     Dosage: 0.950 G, 1X/DAY
     Route: 041
     Dates: start: 20210205, end: 20210209
  5. PHENOBARBITAL. [Suspect]
     Active Substance: PHENOBARBITAL
     Indication: EPILEPSY
     Dosage: 22.500 MG, EVERY 12 HOURS
     Route: 048
     Dates: start: 20210131, end: 20210213
  6. MEPEM [MEROPENEM] [Suspect]
     Active Substance: MEROPENEM
     Indication: MENINGITIS
     Dosage: 0.370 G, EVERY 8 HOURS
     Route: 041
     Dates: start: 20210209, end: 20210213
  7. PHENOBARBITAL SODIUM. [Suspect]
     Active Substance: PHENOBARBITAL SODIUM
     Indication: EPILEPSY
     Dosage: 1.000 ML, 1X/DAY
     Route: 030
     Dates: start: 20210129, end: 20210131

REACTIONS (11)
  - Pruritus [Recovering/Resolving]
  - Skin exfoliation [Recovering/Resolving]
  - Chills [Recovering/Resolving]
  - Rash erythematous [Recovering/Resolving]
  - Flushing [Recovering/Resolving]
  - Off label use [Unknown]
  - Drug hypersensitivity [Recovering/Resolving]
  - Drug eruption [Recovering/Resolving]
  - Pyrexia [Recovering/Resolving]
  - Hepatic function abnormal [Recovering/Resolving]
  - Scratch [Recovering/Resolving]

NARRATIVE: CASE EVENT DATE: 20210128
